FAERS Safety Report 19564055 (Version 1)
Quarter: 2021Q3

REPORT INFORMATION
  Report Type: Spontaneous
  Country: US (occurrence: US)
  Receive Date: 20210716
  Receipt Date: 20210716
  Transmission Date: 20211014
  Serious: Yes (Other)
  Sender: FDA-Public Use
  Company Number: US-BAUSCH-BL-2021-024712

PATIENT
  Sex: Female

DRUGS (1)
  1. CARAC [Suspect]
     Active Substance: FLUOROURACIL
     Indication: HYPERKERATOSIS
     Route: 065

REACTIONS (1)
  - Burns third degree [Unknown]

NARRATIVE: CASE EVENT DATE: 2021
